FAERS Safety Report 9147028 (Version 2)
Quarter: 2013Q2

REPORT INFORMATION
  Report Type: Report from Study
  Country: JP (occurrence: JP)
  Receive Date: 20130307
  Receipt Date: 20130424
  Transmission Date: 20140414
  Serious: Yes (Hospitalization)
  Sender: FDA-Public Use
  Company Number: JP-ROCHE-1198635

PATIENT
  Age: 65 Year
  Sex: Female

DRUGS (18)
  1. OMALIZUMAB [Suspect]
     Indication: ASTHMA
     Route: 058
     Dates: start: 20111114
  2. OMALIZUMAB [Suspect]
     Route: 058
     Dates: start: 20111213
  3. OMALIZUMAB [Suspect]
     Route: 058
     Dates: start: 20120903
  4. OMALIZUMAB [Suspect]
     Route: 058
     Dates: start: 20130210
  5. OMALIZUMAB [Suspect]
     Route: 058
     Dates: start: 20120309
  6. HUMALOG [Concomitant]
     Route: 065
     Dates: start: 20110304
  7. AMARYL [Concomitant]
     Route: 065
     Dates: start: 20120403
  8. AMLODIPINE [Concomitant]
     Route: 065
     Dates: start: 20050106
  9. ATORVASTATIN [Concomitant]
     Route: 065
     Dates: start: 20110311
  10. LANSOPRAZOLE [Concomitant]
     Route: 065
     Dates: start: 20110305
  11. SYMBICORT [Concomitant]
     Route: 065
     Dates: start: 20101215
  12. SINGULAIR [Concomitant]
     Route: 065
     Dates: start: 20090722
  13. THEOLONG [Concomitant]
     Route: 065
     Dates: start: 20101222
  14. PREDONINE [Concomitant]
     Route: 065
     Dates: start: 20111202, end: 20121206
  15. PREDONINE [Concomitant]
     Route: 065
     Dates: start: 20120222, end: 20120227
  16. PREDNISOLONE [Concomitant]
  17. DIOVAN [Concomitant]
     Route: 065
     Dates: start: 20060117
  18. JANUVIA [Concomitant]
     Route: 065
     Dates: start: 20120127

REACTIONS (2)
  - Influenza [Recovering/Resolving]
  - Asthma [Recovering/Resolving]
